FAERS Safety Report 10254213 (Version 1)
Quarter: 2014Q2

REPORT INFORMATION
  Report Type: Spontaneous
  Country: CA (occurrence: CA)
  Receive Date: 20140624
  Receipt Date: 20140624
  Transmission Date: 20141212
  Serious: Yes (Death)
  Sender: FDA-Public Use
  Company Number: CA-AMGEN-CANSP2014045707

PATIENT
  Age: 45 Year
  Sex: Female

DRUGS (1)
  1. XGEVA [Suspect]
     Indication: BREAST CANCER
     Dosage: 120MG/1.7ML, 12 REPEATS
     Route: 065
     Dates: start: 20131009

REACTIONS (1)
  - Death [Fatal]
